FAERS Safety Report 4885496-3 (Version None)
Quarter: 2005Q4

REPORT INFORMATION
  Report Type: 
  Country: None (occurrence: None)
  Receive Date: 20051216
  Receipt Date: 20050526
  Transmission Date: 20060501
  Serious: Yes (Hospitalization)
  Sender: FDA-Public Use
  Company Number: 2005080286

PATIENT
  Age: 81 Year
  Sex: Female
  Weight: 61.2356 kg

DRUGS (7)
  1. MEDROL [Suspect]
     Indication: GOUTY ARTHRITIS
     Dates: start: 20050301, end: 20050301
  2. PREDNISONE [Suspect]
     Indication: GOUTY ARTHRITIS
     Dosage: 5 MG (5 MG, 1 IN 1 D), ORAL
     Route: 048
     Dates: start: 20050301, end: 20050301
  3. COLACE (DOCUSATE SODIUM) [Concomitant]
  4. THORAZINE [Concomitant]
  5. ZYRTEC [Concomitant]
  6. SYNTHROID [Concomitant]
  7. REMINYL (GALANTAMINE) [Concomitant]

REACTIONS (1)
  - HYPERSENSITIVITY [None]
